FAERS Safety Report 8171999-5 (Version None)
Quarter: 2012Q1

REPORT INFORMATION
  Report Type: 
  Country: None (occurrence: None)
  Receive Date: 20120228
  Receipt Date: 20120222
  Transmission Date: 20120608
  Serious: Yes (Hospitalization)
  Sender: FDA-Public Use
  Company Number: FR-PFIZER INC-2012000106

PATIENT
  Age: 34 Year
  Sex: Female

DRUGS (3)
  1. XANAX [Suspect]
     Dosage: 0.25 MG, 60 TABLETS
     Route: 048
  2. ACETAMINOPHEN [Suspect]
     Dosage: SINGLE INTAKE OF 80 TABLETS
     Route: 048
     Dates: start: 20111125, end: 20111125
  3. ESCITALOPRAM [Concomitant]
     Dosage: UNK
     Route: 048

REACTIONS (2)
  - CYTOLYTIC HEPATITIS [None]
  - INTENTIONAL DRUG MISUSE [None]
